FAERS Safety Report 9341503 (Version 1)
Quarter: 2013Q2

REPORT INFORMATION
  Report Type: Spontaneous
  Country: US (occurrence: US)
  Receive Date: 20130611
  Receipt Date: 20130611
  Transmission Date: 20140414
  Serious: No
  Sender: FDA-Public Use
  Company Number: US-009507513-1305USA016902

PATIENT
  Age: 79 Year
  Sex: Male

DRUGS (1)
  1. STROMECTOL [Suspect]
     Indication: LICE INFESTATION
     Dosage: EVERY MONDAY, WEDNESDAY AND FRIDAY
     Route: 048
     Dates: start: 20130506, end: 20130520

REACTIONS (2)
  - Therapeutic response unexpected [Unknown]
  - Abdominal discomfort [Unknown]
